FAERS Safety Report 6788566-8 (Version None)
Quarter: 2010Q2

REPORT INFORMATION
  Report Type: 
  Country: None (occurrence: None)
  Receive Date: 20100623
  Receipt Date: 20080430
  Transmission Date: 20101027
  Serious: No
  Sender: FDA-Public Use
  Company Number: US-PFIZER INC-2008026404

PATIENT
  Sex: Male
  Weight: 83.46 kg

DRUGS (4)
  1. CADUET [Suspect]
     Indication: HYPERTENSION
     Dosage: 10/20MG; TDD 10/20MG
     Route: 048
     Dates: start: 20050310
  2. CADUET [Suspect]
     Indication: HYPERLIPIDAEMIA
  3. PRINZIDE [Concomitant]
     Dosage: 20/25MG; TDD 20/25MG
     Route: 048
  4. NAPROXEN [Concomitant]
     Route: 048

REACTIONS (2)
  - BLOOD CREATININE INCREASED [None]
  - BLOOD UREA INCREASED [None]
